FAERS Safety Report 6791218-1 (Version None)
Quarter: 2010Q2

REPORT INFORMATION
  Report Type: 
  Country: None (occurrence: None)
  Receive Date: 20100624
  Receipt Date: 20100611
  Transmission Date: 20101027
  Serious: Yes (Other)
  Sender: FDA-Public Use
  Company Number: US-JNJFOC-20100506433

PATIENT
  Age: 12 Month
  Sex: Male
  Weight: 12.25 kg

DRUGS (3)
  1. CHILDREN'S TYLENOL SUSPENSION [Suspect]
     Route: 048
  2. CHILDREN'S TYLENOL SUSPENSION [Suspect]
     Indication: ABSCESS
     Dosage: 1 DOSE EVERY 4-6 HOURS; 160 MG/5 ML
     Route: 048
  3. BENADRYL [Suspect]
     Indication: ABSCESS
     Dosage: 5ML EVERY 4-6 HOURS
     Route: 048

REACTIONS (5)
  - HAND-FOOT-AND-MOUTH DISEASE [None]
  - IMMUNE SYSTEM DISORDER [None]
  - PRODUCT QUALITY ISSUE [None]
  - STAPHYLOCOCCAL INFECTION [None]
  - URTICARIA [None]
